FAERS Safety Report 7581276-9 (Version None)
Quarter: 2011Q2

REPORT INFORMATION
  Report Type: 
  Country: None (occurrence: None)
  Receive Date: 20110629
  Receipt Date: 20090918
  Transmission Date: 20111010
  Serious: Yes (Hospitalization, Disabling)
  Sender: FDA-Public Use
  Company Number: FR-ROCHE-656442

PATIENT
  Sex: Male
  Weight: 72 kg

DRUGS (14)
  1. METHOXY POLYETHYLENE GLYCOL-EPOETIN BETA [Suspect]
     Dosage: LAST DOSE PRIOR TO SAE ON 27 JULY 2009 WAS 75 UG AND WITH A BATCH LOT NUMBER H0004H20. FORM:PFS
     Route: 042
     Dates: start: 20090504, end: 20091019
  2. MOTILIUM [Concomitant]
     Dates: start: 20091014
  3. FOLIC ACID [Concomitant]
     Dates: start: 20091014
  4. IKOREL [Concomitant]
     Dates: start: 20060309
  5. METHOXY POLYETHYLENE GLYCOL-EPOETIN BETA [Suspect]
     Dosage: FORM: PRE-FILLED SYRINGE.
     Route: 042
     Dates: start: 20090407
  6. ASPIRIN [Concomitant]
     Dates: start: 20020605
  7. OMEPRAZOLE [Concomitant]
     Dates: start: 20000508
  8. ACETAMINOPHEN AND TRAMADOL HCL [Concomitant]
     Dates: start: 20071128
  9. FOLIC ACID [Concomitant]
     Dates: start: 20071115, end: 20080928
  10. MOVIPREP [Concomitant]
     Dates: start: 20080815
  11. CORVASAL [Concomitant]
     Dates: start: 20090116
  12. RENAGEL [Concomitant]
     Dates: start: 20080711
  13. ATORVASTATIN CALCIUM [Concomitant]
     Dates: start: 20060104
  14. MOTILIUM [Concomitant]
     Dates: start: 20071128, end: 20090928

REACTIONS (3)
  - CELLULITIS [None]
  - OPTIC ISCHAEMIC NEUROPATHY [None]
  - LYMPHANGITIS [None]
